FAERS Safety Report 7647096-1 (Version None)
Quarter: 2011Q3

REPORT INFORMATION
  Report Type: 
  Country: None (occurrence: None)
  Receive Date: 20110801
  Receipt Date: 20110727
  Transmission Date: 20111222
  Serious: Yes (Other)
  Sender: FDA-Public Use
  Company Number: US-ABBOTT-11P-163-0842079-00

PATIENT
  Sex: Female
  Weight: 107.14 kg

DRUGS (2)
  1. HUMIRA [Suspect]
     Dates: start: 20110601
  2. HUMIRA [Suspect]
     Indication: PSORIASIS
     Dates: start: 20090101, end: 20101001

REACTIONS (2)
  - MENORRHAGIA [None]
  - DYSMENORRHOEA [None]
